FAERS Safety Report 7071501-5 (Version None)
Quarter: 2010Q4

REPORT INFORMATION
  Report Type: 
  Country: None (occurrence: None)
  Receive Date: 20101029
  Receipt Date: 20090909
  Transmission Date: 20110411
  Serious: No
  Sender: FDA-Public Use
  Company Number: A0807030A

PATIENT
  Age: 44 Year
  Sex: Female

DRUGS (2)
  1. ADVAIR DISKUS 100/50 [Suspect]
     Indication: ASTHMA
     Route: 055
  2. HUMIRA [Suspect]
     Dosage: 40MG EVERY TWO WEEKS
     Route: 058
     Dates: start: 20090501

REACTIONS (1)
  - ORAL CANDIDIASIS [None]
